FAERS Safety Report 6999722-8 (Version None)
Quarter: 2010Q3

REPORT INFORMATION
  Report Type: 
  Country: None (occurrence: None)
  Receive Date: 20100920
  Receipt Date: 20091117
  Transmission Date: 20110219
  Serious: Yes (Other)
  Sender: FDA-Public Use
  Company Number: US-ASTRAZENECA-2009SE26988

PATIENT
  Age: 20 Year
  Sex: Male

DRUGS (2)
  1. SEROQUEL XR [Suspect]
     Indication: BIPOLAR DISORDER
     Route: 048
     Dates: start: 20091103, end: 20091117
  2. SEROQUEL XR [Suspect]
     Route: 048
     Dates: start: 20091001

REACTIONS (4)
  - FATIGUE [None]
  - FEELING ABNORMAL [None]
  - INCREASED APPETITE [None]
  - SUICIDAL IDEATION [None]
